FAERS Safety Report 8484888 (Version 7)
Quarter: 2013Q3

REPORT INFORMATION
  Report Type: Spontaneous
  Country: AU (occurrence: AU)
  Receive Date: 20120330
  Receipt Date: 20130724
  Transmission Date: 20140515
  Serious: Yes (Death, Other)
  Sender: FDA-Public Use
  Company Number: AU-JNJFOC-20120310817

PATIENT
  Age: 69 Year
  Sex: Male
  Weight: 92 kg

DRUGS (6)
  1. REMICADE [Suspect]
     Indication: PSORIASIS
     Dosage: 6 VIALS
     Route: 042
     Dates: start: 20111222
  2. REMICADE [Suspect]
     Indication: PSORIASIS
     Dosage: 6 VIALS
     Route: 042
     Dates: start: 20080503
  3. MAXOLON [Concomitant]
  4. MINIPRESS [Concomitant]
  5. METHOTREXATE [Concomitant]
  6. LITHIUM [Concomitant]

REACTIONS (6)
  - Eye disorder [Fatal]
  - Muscular weakness [Unknown]
  - Diplopia [Unknown]
  - Weight decreased [Unknown]
  - Pollakiuria [Unknown]
  - Metastatic lymphoma [Fatal]
